FAERS Safety Report 22300663 (Version 1)
Quarter: 2023Q2

REPORT INFORMATION
  Report Type: Report from Study
  Country: US (occurrence: None)
  Receive Date: 20230509
  Receipt Date: 20230509
  Transmission Date: 20230722
  Serious: Yes (Other)
  Sender: FDA-Public Use
  Company Number: 2023A104512

PATIENT
  Age: 23779 Day
  Sex: Male

DRUGS (4)
  1. CALQUENCE [Suspect]
     Active Substance: ACALABRUTINIB
     Indication: Chronic lymphocytic leukaemia
     Route: 048
     Dates: start: 20230209
  2. VITAMIN D [Concomitant]
     Active Substance: VITAMIN D NOS
  3. FISH OIL [Concomitant]
     Active Substance: FISH OIL
  4. COENZYME Q10 [Concomitant]
     Active Substance: DIETARY SUPPLEMENT\UBIDECARENONE

REACTIONS (7)
  - Skin lesion [Unknown]
  - Skin cancer [Unknown]
  - Fatigue [Unknown]
  - Decreased appetite [Unknown]
  - Red blood cell count increased [Unknown]
  - Weight increased [Unknown]
  - Weight loss poor [Unknown]

NARRATIVE: CASE EVENT DATE: 20230502
